FAERS Safety Report 19321459 (Version 3)
Quarter: 2022Q4

REPORT INFORMATION
  Report Type: Other
  Country: US (occurrence: None)
  Receive Date: 20210528
  Receipt Date: 20221116
  Transmission Date: 20230113
  Serious: Yes (Other)
  Sender: FDA-Public Use
  Company Number: US-ROCHE-2835579

PATIENT
  Age: 76 Year
  Sex: Female

DRUGS (16)
  1. ESBRIET [Suspect]
     Active Substance: PIRFENIDONE
     Indication: Interstitial lung disease
     Dosage: TAKE 3 TABLET(S) BY MOUTH 3 TIMES A DAY WITH MEALS
     Route: 048
  2. ESBRIET [Suspect]
     Active Substance: PIRFENIDONE
     Indication: Asthma
  3. ESBRIET [Suspect]
     Active Substance: PIRFENIDONE
     Indication: Pneumonia
  4. ALBUTEROL [Concomitant]
     Active Substance: ALBUTEROL
  5. SYMBICORT [Concomitant]
     Active Substance: BUDESONIDE\FORMOTEROL FUMARATE DIHYDRATE
  6. PLAVIX [Concomitant]
     Active Substance: CLOPIDOGREL BISULFATE
  7. NORVASC [Concomitant]
     Active Substance: AMLODIPINE BESYLATE
  8. PANTOPRAZOLE [Concomitant]
     Active Substance: PANTOPRAZOLE
  9. VALSARTAN [Concomitant]
     Active Substance: VALSARTAN
  10. LASIX [Concomitant]
     Active Substance: FUROSEMIDE
  11. NEURONTIN [Concomitant]
     Active Substance: GABAPENTIN
  12. FISH OIL [Concomitant]
     Active Substance: FISH OIL
  13. INSULIN NOS [Concomitant]
     Active Substance: INSULIN NOS
  14. VITAMIN C [Concomitant]
     Active Substance: ASCORBIC ACID
  15. LIPITOR [Concomitant]
     Active Substance: ATORVASTATIN CALCIUM
  16. ASPIRIN [Concomitant]
     Active Substance: ASPIRIN

REACTIONS (5)
  - Urinary tract infection [Unknown]
  - Dysgeusia [Unknown]
  - Constipation [Unknown]
  - Ageusia [Unknown]
  - Diabetes mellitus [Unknown]
